FAERS Safety Report 15586809 (Version 1)
Quarter: 2018Q4

REPORT INFORMATION
  Report Type: Spontaneous
  Country: US (occurrence: US)
  Receive Date: 20181105
  Receipt Date: 20181105
  Transmission Date: 20190205
  Serious: Yes (Other)
  Sender: FDA-Public Use
  Company Number: None

PATIENT
  Age: 36 Year
  Sex: Female
  Weight: 47.25 kg

DRUGS (1)
  1. DEXILANT [Suspect]
     Active Substance: DEXLANSOPRAZOLE
     Indication: DYSPHAGIA
     Dosage: ?          QUANTITY:1 CAPSULE(S);?
     Route: 048
     Dates: start: 20180906, end: 20181026

REACTIONS (12)
  - Fatigue [None]
  - Chest pain [None]
  - Abdominal pain [None]
  - Abdominal discomfort [None]
  - Decreased appetite [None]
  - Tachycardia [None]
  - Dizziness [None]
  - Asthenia [None]
  - Large intestine polyp [None]
  - Vitamin D decreased [None]
  - Heart rate increased [None]
  - Dyspnoea [None]

NARRATIVE: CASE EVENT DATE: 20181026
